FAERS Safety Report 16466429 (Version 1)
Quarter: 2019Q2

REPORT INFORMATION
  Report Type: Spontaneous
  Country: GB (occurrence: GB)
  Receive Date: 20190622
  Receipt Date: 20190622
  Transmission Date: 20190711
  Serious: Yes (Other)
  Sender: FDA-Public Use
  Company Number: GB-ACCORD-134511

PATIENT
  Age: 82 Year
  Sex: Female
  Weight: 65 kg

DRUGS (11)
  1. BETAHISTINE [Concomitant]
     Active Substance: BETAHISTINE
     Dosage: TAKE 1-2 THREE TIMES A DAY
     Dates: start: 20160819
  2. ORAMORPH [Concomitant]
     Active Substance: MORPHINE SULFATE
     Dosage: 2.5 OR 5MG AS REQUIRED UP TO FOUR HOURLY.?10MG/5ML
     Route: 048
     Dates: start: 20170601
  3. PARACETAMOL [Concomitant]
     Active Substance: ACETAMINOPHEN
     Dosage: TAKE ONE OR TWO FOUR TIMES A DAY(MAXIMUM 8 PER DAY)
     Dates: start: 20170619
  4. ALENDRONATE SODIUM/ALENDRONIC ACID [Concomitant]
     Dates: start: 20160819
  5. LANSOPRAZOLE. [Concomitant]
     Active Substance: LANSOPRAZOLE
     Dates: start: 20160819
  6. ACCRETE D3 [Concomitant]
     Active Substance: CALCIUM CARBONATE\CHOLECALCIFEROL
     Dates: start: 20170619
  7. AMITRIPTYLINE [Suspect]
     Active Substance: AMITRIPTYLINE
     Indication: PRODUCT USED FOR UNKNOWN INDICATION
     Dosage: NIGHT, ALSO RECEIVED AS 30 MG DOSE FROM 20-JUN-2017.
     Route: 048
     Dates: end: 20170620
  8. ATORVASTATIN [Concomitant]
     Active Substance: ATORVASTATIN
     Dosage: NIGHT
     Dates: start: 20160819
  9. LERCANIDIPINE [Concomitant]
     Active Substance: LERCANIDIPINE
     Dates: start: 20170601
  10. CODEINE PHOSPHATE/PARACETAMOL [Concomitant]
     Dosage: 1-2 TABLETS UP TO FOUR TIMES DAILY. 30MG/500MG
     Dates: start: 20170630
  11. AMLODIPINE [Concomitant]
     Active Substance: AMLODIPINE BESYLATE
     Dates: start: 20170530

REACTIONS (1)
  - Hyperhidrosis [Recovering/Resolving]
